FAERS Safety Report 6037918-2 (Version None)
Quarter: 2009Q1

REPORT INFORMATION
  Report Type: 
  Country: None (occurrence: None)
  Receive Date: 20090114
  Receipt Date: 20090114
  Transmission Date: 20090719
  Serious: No
  Sender: FDA-Public Use
  Company Number: None

PATIENT
  Sex: Male
  Weight: 96.4 kg

DRUGS (2)
  1. CALCIUM CARBONATE [Suspect]
     Dosage: 23000 MG
     Dates: start: 20080626, end: 20080811
  2. VITAMIN D [Suspect]
     Dosage: 18400 MG
     Dates: start: 20080626, end: 20080810

REACTIONS (8)
  - ASTHENIA [None]
  - CEREBRAL ISCHAEMIA [None]
  - HEADACHE [None]
  - MYALGIA [None]
  - NUCLEAR MAGNETIC RESONANCE IMAGING BRAIN ABNORMAL [None]
  - PYREXIA [None]
  - SYNOVITIS [None]
  - VASCULAR DEMENTIA [None]
